FAERS Safety Report 11226130 (Version 1)
Quarter: 2015Q2

REPORT INFORMATION
  Report Type: Spontaneous
  Country: US (occurrence: US)
  Receive Date: 20150629
  Receipt Date: 20150629
  Transmission Date: 20150821
  Serious: Yes (Other)
  Sender: FDA-Public Use
  Company Number: US-GLAXOSMITHKLINE-US2015GSK089004

PATIENT
  Sex: Female

DRUGS (1)
  1. LAMICTAL [Suspect]
     Active Substance: LAMOTRIGINE
     Indication: PRODUCT USED FOR UNKNOWN INDICATION
     Dosage: 100 MG, UNK

REACTIONS (8)
  - Seizure [Unknown]
  - Spinal cord injury [Unknown]
  - Mineral deficiency [Unknown]
  - Gastric bypass [Unknown]
  - Spinal cord operation [Unknown]
  - Spinal fusion surgery [Unknown]
  - Loss of consciousness [Unknown]
  - Fall [Unknown]
